FAERS Safety Report 9831099 (Version 1)
Quarter: 2014Q1

REPORT INFORMATION
  Report Type: Spontaneous
  Country: US (occurrence: US)
  Receive Date: 20140120
  Receipt Date: 20140120
  Transmission Date: 20141002
  Serious: Yes (Death)
  Sender: FDA-Public Use
  Company Number: US-MYLANLABS-2014S1000589

PATIENT
  Age: 28 Year
  Sex: Male

DRUGS (4)
  1. EPINEPHRINE [Suspect]
     Route: 051
  2. HEROIN [Suspect]
  3. DIPHENHYDRAMINE [Suspect]
  4. NALOXONE [Suspect]

REACTIONS (3)
  - Completed suicide [Fatal]
  - Cardiac arrest [Unknown]
  - Respiratory arrest [Unknown]
